FAERS Safety Report 8369085-4 (Version None)
Quarter: 2012Q2

REPORT INFORMATION
  Report Type: 
  Country: None (occurrence: None)
  Receive Date: 20120516
  Receipt Date: 20120516
  Transmission Date: 20120825
  Serious: Yes (Other)
  Sender: FDA-Public Use
  Company Number: None

PATIENT
  Age: 74 Year
  Sex: Male
  Weight: 120 kg

DRUGS (3)
  1. CEFTAROLINE FOSAMIL 600 MG FOREST PHARMACEUTICALS [Suspect]
     Indication: KNEE ARTHROPLASTY
     Dosage: 600 MG Q12H IV
     Route: 042
     Dates: start: 20120217, end: 20120330
  2. CEFTAROLINE FOSAMIL 600 MG FOREST PHARMACEUTICALS [Suspect]
     Indication: POST PROCEDURAL INFECTION
     Dosage: 600 MG Q12H IV
     Route: 042
     Dates: start: 20120217, end: 20120330
  3. CEFTAROLINE FOSAMIL 600 MG FOREST PHARMACEUTICALS [Suspect]
     Indication: STAPHYLOCOCCAL INFECTION
     Dosage: 600 MG Q12H IV
     Route: 042
     Dates: start: 20120217, end: 20120330

REACTIONS (1)
  - LEUKOPENIA [None]
